FAERS Safety Report 13269912 (Version 2)
Quarter: 2017Q1

REPORT INFORMATION
  Report Type: Spontaneous
  Country: US (occurrence: US)
  Receive Date: 20170224
  Receipt Date: 20170327
  Transmission Date: 20170428
  Serious: No
  Sender: FDA-Public Use
  Company Number: US-TAIHO ONCOLOGY INC-EU-2017-00305

PATIENT
  Sex: Female

DRUGS (6)
  1. LONSURF [Suspect]
     Active Substance: TIPIRACIL HYDROCHLORIDE\TRIFLURIDINE
     Indication: COLON CANCER STAGE IV
     Route: 048
     Dates: start: 20170118
  2. XARELTO [Concomitant]
     Active Substance: RIVAROXABAN
     Dosage: NI
  3. AMLODIPINE [Concomitant]
     Active Substance: AMLODIPINE BESYLATE
     Dosage: NI
  4. METOPROLOL. [Concomitant]
     Active Substance: METOPROLOL
     Dosage: NI
  5. LOSARTAN. [Concomitant]
     Active Substance: LOSARTAN
     Dosage: NI
  6. CALCARB [Concomitant]
     Dosage: NI

REACTIONS (6)
  - Abdominal pain [Unknown]
  - Fatigue [Unknown]
  - Cachexia [Unknown]
  - Disease progression [Unknown]
  - Dry mouth [Unknown]
  - Decreased appetite [Unknown]

NARRATIVE: CASE EVENT DATE: 2017
